FAERS Safety Report 7080044-4 (Version None)
Quarter: 2010Q4

REPORT INFORMATION
  Report Type: 
  Country: None (occurrence: None)
  Receive Date: 20101102
  Receipt Date: 20100813
  Transmission Date: 20110411
  Serious: No
  Sender: FDA-Public Use
  Company Number: US-ABBOTT-10P-163-0664307-00

PATIENT
  Age: 45 Year
  Sex: Female

DRUGS (5)
  1. BIAXIN [Suspect]
     Indication: PRODUCT USED FOR UNKNOWN INDICATION
  2. NABUMETONE [Concomitant]
     Indication: ARTHRITIS
  3. URSO FORTE [Concomitant]
     Indication: LIVER INJURY
  4. SYNTHROID [Concomitant]
     Indication: PRODUCT USED FOR UNKNOWN INDICATION
  5. ESTRADIOL [Concomitant]
     Indication: HORMONE REPLACEMENT THERAPY

REACTIONS (1)
  - URTICARIA [None]
